FAERS Safety Report 5097605-4 (Version None)
Quarter: 2006Q3

REPORT INFORMATION
  Report Type: 
  Country: None (occurrence: None)
  Receive Date: 20060901
  Receipt Date: 20060818
  Transmission Date: 20061208
  Serious: Yes (Other)
  Sender: FDA-Public Use
  Company Number: JP200607004441

PATIENT
  Age: 65 Year
  Sex: Male
  Weight: 68.2 kg

DRUGS (9)
  1. HUMALOG MIX 75/25 [Suspect]
     Indication: DIABETES MELLITUS
     Dosage: 24 U, DAILY (1/D), SUBCUTANEOUS
     Route: 058
     Dates: start: 20060301, end: 20060620
  2. LIPIDIL [Concomitant]
  3. ISOSORBIDE MONONITRATE [Concomitant]
  4. FAMOTIDINE [Concomitant]
  5. MUCOSTA (REBAMIPIDE) [Concomitant]
  6. NORVASC [Concomitant]
  7. BLOPRESS (CANDESARTAN CILEXETIL) [Concomitant]
  8. METHYCOBAL (MECOBALAMIN) [Concomitant]
  9. JUVELA (TOCOPHERYL NICOTINATE) [Concomitant]

REACTIONS (15)
  - ALANINE AMINOTRANSFERASE INCREASED [None]
  - ASPARTATE AMINOTRANSFERASE INCREASED [None]
  - BLOOD LACTATE DEHYDROGENASE INCREASED [None]
  - DIABETES MELLITUS INADEQUATE CONTROL [None]
  - ECZEMA [None]
  - FALSE NEGATIVE LABORATORY RESULT [None]
  - FATIGUE [None]
  - GAMMA-GLUTAMYLTRANSFERASE INCREASED [None]
  - GLYCOSYLATED HAEMOGLOBIN INCREASED [None]
  - HEPATIC STEATOSIS [None]
  - LIVER DISORDER [None]
  - MALAISE [None]
  - PLATELET COUNT DECREASED [None]
  - PRURITUS [None]
  - URINE GLUCOSE FALSE POSITIVE [None]
